FAERS Safety Report 4440097-6 (Version None)
Quarter: 2004Q3

REPORT INFORMATION
  Report Type: 
  Country: None (occurrence: None)
  Receive Date: 20040902
  Receipt Date: 20040830
  Transmission Date: 20050211
  Serious: Yes (Hospitalization)
  Sender: FDA-Public Use
  Company Number: US-MERCK-0408USA02352

PATIENT
  Sex: Female

DRUGS (1)
  1. VIOXX [Suspect]
     Route: 065

REACTIONS (1)
  - CARDIAC DISORDER [None]
